FAERS Safety Report 14663415 (Version 4)
Quarter: 2018Q2

REPORT INFORMATION
  Report Type: Spontaneous
  Country: US (occurrence: US)
  Receive Date: 20180321
  Receipt Date: 20180618
  Transmission Date: 20180711
  Serious: No
  Sender: FDA-Public Use
  Company Number: US-PFIZER INC-2018114040

PATIENT
  Age: 15 Year
  Sex: Male
  Weight: 55 kg

DRUGS (2)
  1. IBUPROFEN. [Concomitant]
     Active Substance: IBUPROFEN
     Indication: DEPRESSION
     Dosage: 75 MG, DAILY
     Dates: start: 20160608
  2. GENOTROPIN [Suspect]
     Active Substance: SOMATROPIN
     Indication: BLOOD GROWTH HORMONE ABNORMAL
     Dosage: 3.4 MG, 1X/DAY

REACTIONS (1)
  - Limb discomfort [Unknown]
